FAERS Safety Report 4920891-5 (Version None)
Quarter: 2006Q1

REPORT INFORMATION
  Report Type: 
  Country: None (occurrence: None)
  Receive Date: 20060217
  Receipt Date: 20060203
  Transmission Date: 20060701
  Serious: Yes (Other)
  Sender: FDA-Public Use
  Company Number: 200610616GDS

PATIENT
  Age: 30 Year
  Sex: Female

DRUGS (2)
  1. CIPRO [Suspect]
     Dosage: 1000 MG, TOTAL DAILY, ORAL
     Route: 048
  2. YASMIN [Suspect]
     Dosage: QD, ORAL
     Route: 048

REACTIONS (3)
  - BLOOD CREATININE INCREASED [None]
  - RENAL TUBULAR NECROSIS [None]
  - URINARY TRACT INFECTION [None]
